FAERS Safety Report 4645877-X (Version None)
Quarter: 2005Q2

REPORT INFORMATION
  Report Type: 
  Country: None (occurrence: None)
  Receive Date: 20050427
  Receipt Date: 20050415
  Transmission Date: 20051028
  Serious: Yes (Hospitalization)
  Sender: FDA-Public Use
  Company Number: US-JNJFOC-20050403989

PATIENT
  Age: 67 Year
  Sex: Female

DRUGS (2)
  1. DURAGESIC [Suspect]
     Route: 062
     Dates: start: 20050201, end: 20050201
  2. OXYCODONE [Concomitant]
     Indication: PAIN
     Route: 049
     Dates: start: 20050201

REACTIONS (3)
  - FALL [None]
  - FEELING ABNORMAL [None]
  - HIP FRACTURE [None]
